FAERS Safety Report 23103796 (Version 1)
Quarter: 2023Q4

REPORT INFORMATION
  Report Type: Spontaneous
  Country: US (occurrence: None)
  Receive Date: 20231022
  Receipt Date: 20231022
  Transmission Date: 20240110
  Serious: Yes (Hospitalization)
  Sender: FDA-Public Use
  Company Number: None

PATIENT
  Age: 38 Year
  Sex: Male
  Weight: 112 kg

DRUGS (2)
  1. LOSARTAN [Suspect]
     Active Substance: LOSARTAN
     Dosage: FREQUENCY : DAILY;?
     Route: 048
     Dates: start: 20210902, end: 20230316
  2. MIRABEGRON [Suspect]
     Active Substance: MIRABEGRON
     Dosage: FREQUENCY : DAILY;?
     Route: 048
     Dates: start: 20230216, end: 20230316

REACTIONS (1)
  - Angioedema [None]

NARRATIVE: CASE EVENT DATE: 20230316
